FAERS Safety Report 24092075 (Version 1)
Quarter: 2024Q3

REPORT INFORMATION
  Report Type: Spontaneous
  Country: US (occurrence: US)
  Receive Date: 20240715
  Receipt Date: 20240715
  Transmission Date: 20241017
  Serious: Yes (Hospitalization, Other)
  Sender: MEITHEAL PHARMACEUTICALS
  Company Number: US-MEITHEAL-2024MPLIT00204

PATIENT
  Age: 59 Year
  Sex: Male

DRUGS (3)
  1. ETOPOSIDE [Suspect]
     Active Substance: ETOPOSIDE
     Indication: Central nervous system lymphoma
     Route: 065
  2. Granulocyte macrophage colony-stimulating factor [Concomitant]
     Indication: Neutropenia
     Route: 065
  3. CYTARABINE [Concomitant]
     Active Substance: CYTARABINE
     Route: 065

REACTIONS (1)
  - Megacolon [Unknown]
